FAERS Safety Report 4626246-5 (Version None)
Quarter: 2005Q2

REPORT INFORMATION
  Report Type: 
  Country: None (occurrence: None)
  Receive Date: 20050404
  Receipt Date: 20030926
  Transmission Date: 20051028
  Serious: Yes (Other)
  Sender: FDA-Public Use
  Company Number: US-ROCHE-347962

PATIENT
  Age: 49 Year
  Sex: Male
  Weight: 72.1 kg

DRUGS (3)
  1. PEG-INTERFERON ALFA 2A (RO 25-8310) [Suspect]
     Route: 058
     Dates: start: 20030501, end: 20030918
  2. BLINDED THYMOSIN ALFA 1 [Suspect]
     Route: 058
     Dates: start: 20030502, end: 20030923
  3. AMBIEN [Concomitant]
     Route: 048
     Dates: start: 20030530

REACTIONS (1)
  - LUNG NEOPLASM MALIGNANT [None]
